FAERS Safety Report 18046524 (Version 1)
Quarter: 2020Q3

REPORT INFORMATION
  Report Type: Spontaneous
  Country: US (occurrence: US)
  Receive Date: 20200720
  Receipt Date: 20200720
  Transmission Date: 20201103
  Serious: No
  Sender: FDA-Public Use
  Company Number: NVSC2020US203421

PATIENT
  Sex: Male

DRUGS (1)
  1. KISQALI [Suspect]
     Active Substance: RIBOCICLIB
     Indication: BREAST CANCER MALE
     Dosage: 600 MG, OTHER(TAKE 3 TABLETS BY MOUTH ONCE DAILY WITH OR WITH OUT FOOD ON DAYS 1 TO 21)
     Route: 048
     Dates: start: 202006

REACTIONS (2)
  - Product dose omission issue [Unknown]
  - Decreased appetite [Not Recovered/Not Resolved]
